FAERS Safety Report 5694769-6 (Version None)
Quarter: 2008Q2

REPORT INFORMATION
  Report Type: 
  Country: None (occurrence: None)
  Receive Date: 20080404
  Receipt Date: 20080402
  Transmission Date: 20081010
  Serious: Yes (Life-Threatening)
  Sender: FDA-Public Use
  Company Number: JP-ASTRAZENECA-2008AP02270

PATIENT
  Age: 37 Year
  Sex: Female

DRUGS (1)
  1. XYLOCAINE [Suspect]
     Dosage: DOSE UNKNOWN
     Route: 065

REACTIONS (1)
  - ANAPHYLACTIC SHOCK [None]
